FAERS Safety Report 16451489 (Version 2)
Quarter: 2019Q3

REPORT INFORMATION
  Report Type: Report from Study
  Country: US (occurrence: US)
  Receive Date: 20190619
  Receipt Date: 20190730
  Transmission Date: 20191004
  Serious: Yes (Hospitalization, Other)
  Sender: FDA-Public Use
  Company Number: US-GILEAD-2019-0414000

PATIENT
  Age: 70 Year
  Sex: Female
  Weight: 67.94 kg

DRUGS (8)
  1. ASPIRIN (E.C.) [Concomitant]
     Active Substance: ASPIRIN
  2. TESSALON [Concomitant]
     Active Substance: BENZONATATE
  3. LASIX [Concomitant]
     Active Substance: FUROSEMIDE
  4. LETROZOLE. [Concomitant]
     Active Substance: LETROZOLE
  5. AMBRISENTAN [Suspect]
     Active Substance: AMBRISENTAN
     Indication: PULMONARY HYPERTENSION
     Dosage: 5 MG, QD
     Route: 065
     Dates: start: 20190523
  6. COREG [Concomitant]
     Active Substance: CARVEDILOL
  7. K-DUR [Concomitant]
     Active Substance: POTASSIUM CHLORIDE
  8. ALBUTEROL [SALBUTAMOL] [Concomitant]
     Active Substance: ALBUTEROL

REACTIONS (7)
  - Cardiac failure congestive [Not Recovered/Not Resolved]
  - Anaemia [Unknown]
  - Aortic stenosis [Not Recovered/Not Resolved]
  - Lymphoedema [Not Recovered/Not Resolved]
  - Blood pressure increased [Unknown]
  - Swelling [Unknown]
  - Pulmonary hypertension [Not Recovered/Not Resolved]
